FAERS Safety Report 23937812 (Version 1)
Quarter: 2024Q2

REPORT INFORMATION
  Report Type: Spontaneous
  Country: US (occurrence: US)
  Receive Date: 20240604
  Receipt Date: 20240604
  Transmission Date: 20240716
  Serious: Yes (Other)
  Sender: FDA-Public Use
  Company Number: US-MYLANLABS-2024M1049976

PATIENT
  Age: 13 Year
  Sex: Male

DRUGS (4)
  1. CISPLATIN [Suspect]
     Active Substance: CISPLATIN
     Indication: Medulloblastoma
     Dosage: UNK UNK, CYCLE (MAINTENANCE CHEMOTHERAPY)
     Route: 065
  2. CISPLATIN [Suspect]
     Active Substance: CISPLATIN
     Dosage: UNK UNK, CYCLE, DOSE WAS REDUCED BY 25% IN CYCLE 2 AND DISCONTINUED IN CYCLES 3-6
     Route: 065
  3. CYCLOPHOSPHAMIDE [Suspect]
     Active Substance: CYCLOPHOSPHAMIDE
     Indication: Medulloblastoma recurrent
     Dosage: UNK, CYCLE,  MAINTENANCE CHEMOTHERAPY
     Route: 065
  4. CYCLOPHOSPHAMIDE [Suspect]
     Active Substance: CYCLOPHOSPHAMIDE
     Dosage: UNK, CYCLE, ( DOSE WAS REDUCED BY 25% IN CYCLES 4 AND 5)
     Route: 065

REACTIONS (3)
  - Ototoxicity [Unknown]
  - Drug ineffective [Unknown]
  - Off label use [Unknown]
